FAERS Safety Report 5864456-X (Version None)
Quarter: 2008Q3

REPORT INFORMATION
  Report Type: 
  Country: None (occurrence: None)
  Receive Date: 20080829
  Receipt Date: 20080723
  Transmission Date: 20090109
  Serious: No
  Sender: FDA-Public Use
  Company Number: US-ABBOTT-08P-163-0460709-00

PATIENT
  Sex: Male

DRUGS (1)
  1. NIACIN ER/SIMVASTATIN [Suspect]
     Indication: BLOOD CHOLESTEROL
     Dosage: 500/20MILLIGRAMS DAILY
     Route: 048
     Dates: start: 20080617

REACTIONS (3)
  - FLUSHING [None]
  - HYPOAESTHESIA FACIAL [None]
  - PARAESTHESIA [None]
